FAERS Safety Report 4827234-6 (Version None)
Quarter: 2005Q4

REPORT INFORMATION
  Report Type: 
  Country: None (occurrence: None)
  Receive Date: 20051114
  Receipt Date: 20051101
  Transmission Date: 20060501
  Serious: Yes (Other)
  Sender: FDA-Public Use
  Company Number: US-AVENTIS-200518907US

PATIENT
  Sex: Male

DRUGS (4)
  1. LANTUS [Suspect]
     Dosage: DOSE: UNKNOWN
     Route: 051
  2. LANTUS [Suspect]
     Dosage: DOSE: UNKNOWN
     Route: 051
     Dates: end: 20051001
  3. LANTUS [Suspect]
     Dosage: DOSE: UNK
     Route: 051
     Dates: start: 20051001
  4. NPH INSULIN [Concomitant]
     Dosage: DOSE: UNKNOWN

REACTIONS (2)
  - HYPOGLYCAEMIA [None]
  - HYPOGLYCAEMIC SEIZURE [None]
